FAERS Safety Report 20478533 (Version 5)
Quarter: 2022Q1

REPORT INFORMATION
  Report Type: Report from Study
  Country: CN (occurrence: None)
  Receive Date: 20220216
  Receipt Date: 20220328
  Transmission Date: 20220423
  Serious: Yes (Death)
  Sender: FDA-Public Use
  Company Number: CN-ROCHE-3025622

PATIENT
  Age: 48 Year
  Sex: Female
  Weight: 67 kg

DRUGS (5)
  1. BEVACIZUMAB [Suspect]
     Active Substance: BEVACIZUMAB
     Indication: Small cell lung cancer extensive stage
     Dosage: STRENGTH: 400MG/16ML?DATE OF MOST RECENT DOSE (600 MG) OF BEVACIZUMAB/PLACEBO PRIOR TO AE/SAE ONSET
     Route: 042
     Dates: start: 20211126
  2. ATEZOLIZUMAB [Suspect]
     Active Substance: ATEZOLIZUMAB
     Indication: Small cell lung cancer extensive stage
     Dosage: DATE OF MOST RECENT DOSE OF ATEZOLIZUMAB PRIOR TO AE/SAE ONSET 24/JAN/2022
     Route: 041
     Dates: start: 20211126
  3. CARBOPLATIN [Suspect]
     Active Substance: CARBOPLATIN
     Indication: Small cell lung cancer extensive stage
     Dosage: OVER 30 TO 60 MINUTES TO ACHIEVE AN INITIAL TARGET AREA UNDER THE CONCENTRATION-TIME CURVE (AUC) OF
     Route: 042
     Dates: start: 20211126
  4. ETOPOSIDE [Suspect]
     Active Substance: ETOPOSIDE
     Indication: Small cell lung cancer extensive stage
     Dosage: DATE OF MOST RECENT DOSE OF ETOPOSIDE PRIOR TO AE/SAE ONSET 26/JAN/2022, 120 MG
     Route: 042
     Dates: start: 20211126
  5. NIFEDIPINE [Concomitant]
     Active Substance: NIFEDIPINE
     Indication: Hypertension
     Route: 048
     Dates: start: 20210124, end: 20210124

REACTIONS (1)
  - Cardiac arrest [Fatal]

NARRATIVE: CASE EVENT DATE: 20220212
